FAERS Safety Report 9654781 (Version 1)
Quarter: 2013Q4

REPORT INFORMATION
  Report Type: Spontaneous
  Country: DE (occurrence: None)
  Receive Date: 20131015
  Receipt Date: 20131015
  Transmission Date: 20140711
  Serious: Yes (Death, Hospitalization)
  Sender: FDA-Public Use
  Company Number: 2013038283

PATIENT
  Age: 72 Year
  Sex: Male

DRUGS (11)
  1. PRIVIGEN [Suspect]
     Indication: NON-HODGKIN^S LYMPHOMA
     Dosage: 10 G TOTAL, TOTAL DOSE- 30G, 10 G TOTAL
     Route: 042
     Dates: start: 20120113, end: 20120113
  2. VOTUM (OLMESARTAN MEDOXOMIL) [Concomitant]
  3. ALLOPURINOL [Concomitant]
  4. ACTRAPID (INSULIN HUMAN) [Concomitant]
  5. IMODIUM [Concomitant]
  6. FOLSAN (FOLIC ACID) [Concomitant]
  7. CAMPHORATED TINCTURE OF OPIUM (PAPAVER SOMNIFERUM TINCTURE) [Concomitant]
  8. SERQUEL [Concomitant]
  9. LYRICA (PREGABALIN) [Concomitant]
  10. PANTOZOL (PANTOPRAZOLE SODIUM) [Concomitant]
  11. HCT (HYDROCHLOROTHIAZIDE) [Concomitant]

REACTIONS (3)
  - Disease progression [None]
  - Non-Hodgkin^s lymphoma [None]
  - General physical health deterioration [None]
